FAERS Safety Report 15765808 (Version 3)
Quarter: 2019Q3

REPORT INFORMATION
  Report Type: Spontaneous
  Country: US (occurrence: US)
  Receive Date: 20181227
  Receipt Date: 20190807
  Transmission Date: 20191004
  Serious: No
  Sender: FDA-Public Use
  Company Number: US-SA-2018SA393271

PATIENT
  Age: 76 Year
  Sex: Female

DRUGS (4)
  1. FABRAZYME [Suspect]
     Active Substance: AGALSIDASE BETA
     Indication: FABRY^S DISEASE
     Dosage: 105 MG, QOW
     Route: 041
     Dates: start: 2003, end: 20171128
  2. FABRAZYME [Suspect]
     Active Substance: AGALSIDASE BETA
     Dosage: 105 MG, QOW
     Route: 041
  3. FABRAZYME [Suspect]
     Active Substance: AGALSIDASE BETA
     Dosage: UNK UNK, UNK
     Route: 041
     Dates: start: 20150113
  4. FABRAZYME [Suspect]
     Active Substance: AGALSIDASE BETA
     Dosage: UNK UNK, UNK
     Route: 041
     Dates: start: 20190726

REACTIONS (2)
  - Malaise [Not Recovered/Not Resolved]
  - Ill-defined disorder [Unknown]

NARRATIVE: CASE EVENT DATE: 20181214
